FAERS Safety Report 4434840-X (Version None)
Quarter: 2004Q3

REPORT INFORMATION
  Report Type: 
  Country: None (occurrence: None)
  Receive Date: 20040726
  Receipt Date: 20040505
  Transmission Date: 20050211
  Serious: No
  Sender: FDA-Public Use
  Company Number: USA040566783

PATIENT
  Age: 60 Year
  Sex: Female
  Weight: 46 kg

DRUGS (8)
  1. FORTEO [Suspect]
     Indication: OSTEOPOROSIS
     Dates: start: 20040401
  2. ESTROGEN NOS [Concomitant]
  3. CALCIUM [Concomitant]
  4. THERAGRAM M MULTIVITAMIN [Concomitant]
  5. VITAMIN D [Concomitant]
  6. VITAMIN B-12 [Concomitant]
  7. VITAMIN B6 [Concomitant]
  8. VITAMINE E [Concomitant]

REACTIONS (4)
  - ASTHENIA [None]
  - INJECTION SITE ERYTHEMA [None]
  - NAUSEA [None]
  - SOMNOLENCE [None]
